FAERS Safety Report 7966185-5 (Version None)
Quarter: 2011Q4

REPORT INFORMATION
  Report Type: 
  Country: None (occurrence: None)
  Receive Date: 20111208
  Receipt Date: 20111128
  Transmission Date: 20120403
  Serious: Yes (Other)
  Sender: FDA-Public Use
  Company Number: PHHY2011KE104054

PATIENT
  Age: 20 Year
  Sex: Male

DRUGS (1)
  1. VOLTAREN [Suspect]
     Indication: INJURY
     Dosage: 75 MG, QD
     Route: 030

REACTIONS (2)
  - MYALGIA [None]
  - MUSCLE SWELLING [None]
